FAERS Safety Report 24377333 (Version 1)
Quarter: 2024Q3

REPORT INFORMATION
  Report Type: Spontaneous
  Country: IN (occurrence: IN)
  Receive Date: 20240930
  Receipt Date: 20240930
  Transmission Date: 20241016
  Serious: Yes (Other)
  Sender: PANACEA BIOTEC
  Company Number: IN-PBT-009718

PATIENT
  Age: 47 Year
  Sex: Female

DRUGS (1)
  1. TACROLIMUS [Suspect]
     Active Substance: TACROLIMUS
     Indication: Prophylaxis against transplant rejection
     Route: 065

REACTIONS (4)
  - Corneal graft rejection [Unknown]
  - Corneal graft failure [Unknown]
  - Visual acuity reduced [Unknown]
  - Product use in unapproved indication [Unknown]
